FAERS Safety Report 4731444-6 (Version None)
Quarter: 2005Q3

REPORT INFORMATION
  Report Type: 
  Country: None (occurrence: None)
  Receive Date: 20050801
  Receipt Date: 20050801
  Transmission Date: 20060218
  Serious: Yes (Other)
  Sender: FDA-Public Use
  Company Number: None

PATIENT
  Age: 50 Year
  Sex: Female
  Weight: 68.0396 kg

DRUGS (2)
  1. ARMOUR THYROID  120 M FOREST [Suspect]
     Indication: HYPOTHYROIDISM
     Dosage: ARMOUR  1 1/2 TABLETS ORAL
     Route: 048
     Dates: start: 19870201, end: 20050730
  2. THYROLAR-0.25 [Suspect]
     Indication: HYPOTHYROIDISM
     Dosage: THYROLAR  2 TABLETS ORAL
     Route: 048

REACTIONS (5)
  - ALOPECIA [None]
  - CONSTIPATION [None]
  - DRUG INEFFECTIVE [None]
  - DRUG LEVEL DECREASED [None]
  - FEELING COLD [None]
